FAERS Safety Report 7584686-9 (Version None)
Quarter: 2011Q2

REPORT INFORMATION
  Report Type: 
  Country: None (occurrence: None)
  Receive Date: 20110630
  Receipt Date: 20110617
  Transmission Date: 20111010
  Serious: Yes (Other)
  Sender: FDA-Public Use
  Company Number: PHHY2011US55406

PATIENT
  Sex: Female

DRUGS (5)
  1. RECLAST [Suspect]
     Dosage: 5 MG
     Route: 042
  2. MIACALCIN [Suspect]
  3. FOSAMAX [Suspect]
  4. EVISTA [Suspect]
  5. SYNTHROID [Concomitant]

REACTIONS (7)
  - HEADACHE [None]
  - HYPERTENSION [None]
  - BONE PAIN [None]
  - EPISTAXIS [None]
  - OSTEOPOROSIS [None]
  - FEELING HOT [None]
  - ABDOMINAL DISCOMFORT [None]
